FAERS Safety Report 8169392-4 (Version None)
Quarter: 2012Q1

REPORT INFORMATION
  Report Type: 
  Country: None (occurrence: None)
  Receive Date: 20120222
  Receipt Date: 20120208
  Transmission Date: 20120608
  Serious: Yes (Other)
  Sender: FDA-Public Use
  Company Number: DSA_55137_2012

PATIENT
  Age: 55 Year
  Sex: Male

DRUGS (3)
  1. CISPLATIN [Suspect]
     Indication: OESOPHAGEAL CARCINOMA
     Dosage: (DF)
  2. FLUOROURACIL [Suspect]
     Indication: OESOPHAGEAL CARCINOMA
     Dosage: (DF)
     Dates: start: 20030101
  3. THERAPEUTIC RADIOPHARMACEUTICALS (THERAPEUTIC RADIOPHARMACEUTICALS) [Suspect]
     Indication: OESOPHAGEAL CARCINOMA
     Dosage: (DF)

REACTIONS (8)
  - BACK PAIN [None]
  - SPONDYLITIS [None]
  - STAPHYLOCOCCUS TEST POSITIVE [None]
  - OESOPHAGEAL FISTULA [None]
  - DISEASE RECURRENCE [None]
  - OESOPHAGEAL RUPTURE [None]
  - PYREXIA [None]
  - OESOPHAGEAL STENOSIS [None]
